FAERS Safety Report 10963324 (Version 4)
Quarter: 2015Q3

REPORT INFORMATION
  Report Type: Spontaneous
  Country: AR (occurrence: AR)
  Receive Date: 20150327
  Receipt Date: 20150807
  Transmission Date: 20151125
  Serious: Yes (Other)
  Sender: FDA-Public Use
  Company Number: AR-ASTRAZENECA-2015SE27024

PATIENT
  Age: 52 Year
  Sex: Male

DRUGS (1)
  1. CAPRELSA [Suspect]
     Active Substance: VANDETANIB
     Indication: THYROID CANCER
     Route: 048
     Dates: start: 20150221, end: 20150316

REACTIONS (11)
  - Haematochezia [Not Recovered/Not Resolved]
  - Peripheral swelling [Unknown]
  - Ulcer [Not Recovered/Not Resolved]
  - Skin discolouration [Unknown]
  - Swelling [Not Recovered/Not Resolved]
  - Dysuria [Not Recovered/Not Resolved]
  - Visual impairment [Unknown]
  - Lung cyst [Unknown]
  - Tachycardia [Not Recovered/Not Resolved]
  - Pruritus [Not Recovered/Not Resolved]
  - Wound [Unknown]

NARRATIVE: CASE EVENT DATE: 20150316
